FAERS Safety Report 4660996-X (Version None)
Quarter: 2005Q2

REPORT INFORMATION
  Report Type: 
  Country: None (occurrence: None)
  Receive Date: 20050511
  Receipt Date: 20050428
  Transmission Date: 20051028
  Serious: Yes (Hospitalization)
  Sender: FDA-Public Use
  Company Number: 2005067409

PATIENT
  Sex: Female
  Weight: 86.1834 kg

DRUGS (4)
  1. BEXTRA [Suspect]
     Indication: OSTEOARTHRITIS
     Dosage: 20 MG (20 MG, 1 IN 1 D), ORAL
     Route: 048
     Dates: start: 20030101, end: 20050301
  2. CALCIUM (CALCIUM) [Concomitant]
  3. VITAMIN E [Concomitant]
  4. LIPITOR [Concomitant]

REACTIONS (14)
  - ARTHRALGIA [None]
  - ARTHROPATHY [None]
  - ASTHMA [None]
  - CONDITION AGGRAVATED [None]
  - DRY SKIN [None]
  - DYSPHAGIA [None]
  - FATIGUE [None]
  - GASTROOESOPHAGEAL REFLUX DISEASE [None]
  - HYPOTHYROIDISM [None]
  - INCORRECT DRUG ADMINISTRATION DURATION [None]
  - PIGMENTED NAEVUS [None]
  - PRURITUS [None]
  - SKIN DISORDER [None]
  - TREATMENT NONCOMPLIANCE [None]
